FAERS Safety Report 6048522-4 (Version None)
Quarter: 2009Q1

REPORT INFORMATION
  Report Type: 
  Country: None (occurrence: None)
  Receive Date: 20090123
  Receipt Date: 20090119
  Transmission Date: 20090719
  Serious: Yes (Other)
  Sender: FDA-Public Use
  Company Number: D0060214A

PATIENT
  Age: 32 Year
  Sex: Female
  Weight: 57.2 kg

DRUGS (3)
  1. LAMICTAL [Suspect]
     Indication: EPILEPSY
     Dosage: 100MG PER DAY
     Route: 048
     Dates: start: 19950101
  2. CONVULEX [Concomitant]
     Indication: EPILEPSY
     Route: 048
     Dates: start: 19850101
  3. COTRIM [Concomitant]
     Indication: WHIPPLE'S DISEASE
     Route: 048
     Dates: start: 20080801

REACTIONS (1)
  - DISTURBANCE IN ATTENTION [None]
